FAERS Safety Report 8245083-6 (Version None)
Quarter: 2012Q1

REPORT INFORMATION
  Report Type: 
  Country: None (occurrence: None)
  Receive Date: 20120329
  Receipt Date: 20120328
  Transmission Date: 20120608
  Serious: Yes (Hospitalization)
  Sender: FDA-Public Use
  Company Number: US-GLAXOSMITHKLINE-A0968089A

PATIENT
  Age: 38 Year
  Sex: Male
  Weight: 105 kg

DRUGS (1)
  1. VOTRIENT [Suspect]
     Indication: NEUROENDOCRINE CARCINOMA
     Dosage: 800MG PER DAY
     Route: 048
     Dates: start: 20120128

REACTIONS (17)
  - SYNCOPE [None]
  - HYPOTENSION [None]
  - ASPARTATE AMINOTRANSFERASE INCREASED [None]
  - ANAEMIA [None]
  - HYPONATRAEMIA [None]
  - FATIGUE [None]
  - NAUSEA [None]
  - GAMMA-GLUTAMYLTRANSFERASE INCREASED [None]
  - HAEMORRHAGE INTRACRANIAL [None]
  - HYPOALBUMINAEMIA [None]
  - TROPONIN T INCREASED [None]
  - PLATELET COUNT DECREASED [None]
  - CONFUSIONAL STATE [None]
  - HYPERTENSION [None]
  - MYOCARDIAL INFARCTION [None]
  - ALANINE AMINOTRANSFERASE INCREASED [None]
  - BLOOD BILIRUBIN INCREASED [None]
